FAERS Safety Report 12607074 (Version 1)
Quarter: 2016Q3

REPORT INFORMATION
  Report Type: Spontaneous
  Country: US (occurrence: US)
  Receive Date: 20160729
  Receipt Date: 20160729
  Transmission Date: 20161109
  Serious: No
  Sender: FDA-Public Use
  Company Number: US-CELGENEUS-USA-2016075504

PATIENT
  Sex: Female

DRUGS (1)
  1. OTEZLA [Suspect]
     Active Substance: APREMILAST
     Indication: PSORIASIS
     Dosage: 30MG, STARTER PACK
     Route: 048

REACTIONS (4)
  - Anaemia [Unknown]
  - Diarrhoea [Unknown]
  - Constipation [Unknown]
  - Cough [Unknown]
